FAERS Safety Report 4453675-5 (Version None)
Quarter: 2004Q3

REPORT INFORMATION
  Report Type: 
  Country: None (occurrence: None)
  Receive Date: 20040920
  Receipt Date: 20040909
  Transmission Date: 20050211
  Serious: Yes (Hospitalization)
  Sender: FDA-Public Use
  Company Number: FR-BRISTOL-MYERS SQUIBB COMPANY-12699799

PATIENT
  Age: 48 Year
  Sex: Male

DRUGS (6)
  1. GLUCOPHAGE [Suspect]
     Dosage: DOSAGE FORM = TABLET
     Route: 048
     Dates: start: 20040101
  2. TRIATEC [Suspect]
     Route: 048
     Dates: start: 20040101
  3. ASPIRIN [Suspect]
     Route: 048
     Dates: start: 20040101
  4. AMAREL [Suspect]
     Route: 048
     Dates: start: 20040101
  5. DIASTABOL [Suspect]
     Route: 048
     Dates: start: 20040101
  6. ANAFRANIL [Suspect]
     Route: 048
     Dates: start: 20040101

REACTIONS (1)
  - ANGIONEUROTIC OEDEMA [None]
